FAERS Safety Report 14772601 (Version 3)
Quarter: 2018Q2

REPORT INFORMATION
  Report Type: Spontaneous
  Country: US (occurrence: US)
  Receive Date: 20180418
  Receipt Date: 20180518
  Transmission Date: 20180711
  Serious: Yes (Other)
  Sender: FDA-Public Use
  Company Number: US-009507513-1804USA004533

PATIENT
  Age: 23 Year
  Sex: Female
  Weight: 83.9 kg

DRUGS (1)
  1. IMPLANON [Suspect]
     Active Substance: ETONOGESTREL
     Indication: CONTRACEPTION
     Dosage: 1 DF, EVERY 3 YEARS, LEFT ARM
     Route: 059
     Dates: start: 20100113

REACTIONS (12)
  - Device dislocation [Unknown]
  - Menorrhagia [Unknown]
  - Complication associated with device [Recovered/Resolved]
  - Pain in extremity [Unknown]
  - Implant site scar [Unknown]
  - Unintended pregnancy [Recovered/Resolved]
  - Complication of device removal [Not Recovered/Not Resolved]
  - Peripheral swelling [Not Recovered/Not Resolved]
  - Incorrect drug administration duration [Unknown]
  - Surgery [Unknown]
  - Pregnancy with implant contraceptive [Recovered/Resolved]
  - Movement disorder [Unknown]

NARRATIVE: CASE EVENT DATE: 201004
